FAERS Safety Report 15636743 (Version 1)
Quarter: 2018Q4

REPORT INFORMATION
  Report Type: Spontaneous
  Country: US (occurrence: US)
  Receive Date: 20181114
  Receipt Date: 20181114
  Transmission Date: 20190205
  Serious: No
  Sender: FDA-Public Use
  Company Number: None

PATIENT
  Age: 55 Year
  Sex: Female

DRUGS (2)
  1. IBRANCE [Suspect]
     Active Substance: PALBOCICLIB
     Indication: NEOPLASM MALIGNANT
     Route: 048
     Dates: start: 20181018
  2. FASLODEX [Concomitant]
     Active Substance: FULVESTRANT

REACTIONS (3)
  - Nasopharyngitis [None]
  - Fatigue [None]
  - Pulmonary congestion [None]

NARRATIVE: CASE EVENT DATE: 20181111
